FAERS Safety Report 13636753 (Version 1)
Quarter: 2017Q2

REPORT INFORMATION
  Report Type: Spontaneous
  Country: US (occurrence: US)
  Receive Date: 20170531
  Receipt Date: 20170531
  Transmission Date: 20170830
  Serious: No
  Sender: FDA-Public Use
  Company Number: US-ASTELLAS-1847838

PATIENT
  Sex: Male

DRUGS (4)
  1. TARCEVA [Suspect]
     Active Substance: ERLOTINIB HYDROCHLORIDE
     Indication: LUNG NEOPLASM MALIGNANT
     Route: 048
     Dates: start: 20160906
  2. OXYCODONE [Concomitant]
     Active Substance: OXYCODONE
  3. HYDROXYZINE [Concomitant]
     Active Substance: HYDROXYZINE HYDROCHLORIDE
  4. VITAMIN B12 [Concomitant]
     Active Substance: CYANOCOBALAMIN

REACTIONS (8)
  - Rash [Unknown]
  - Fatigue [Unknown]
  - Viral upper respiratory tract infection [Unknown]
  - Cough [Unknown]
  - Ageusia [Unknown]
  - Asthenia [Unknown]
  - Feeling jittery [Unknown]
  - Diverticulitis [Unknown]
